FAERS Safety Report 24979528 (Version 8)
Quarter: 2025Q2

REPORT INFORMATION
  Report Type: Report from Study
  Country: CA (occurrence: CA)
  Receive Date: 20250218
  Receipt Date: 20250624
  Transmission Date: 20250717
  Serious: Yes (Hospitalization, Other)
  Sender: TAKEDA
  Company Number: CA-TAKEDA-2025TUS009962

PATIENT
  Age: 73 Year
  Sex: Male

DRUGS (20)
  1. VEDOLIZUMAB [Suspect]
     Active Substance: VEDOLIZUMAB
     Indication: Crohn^s disease
  2. VEDOLIZUMAB [Suspect]
     Active Substance: VEDOLIZUMAB
     Dosage: 300 MILLIGRAM, Q4WEEKS
     Dates: start: 20210903
  3. VEDOLIZUMAB [Suspect]
     Active Substance: VEDOLIZUMAB
     Dosage: 300 MILLIGRAM, Q4WEEKS
  4. VEDOLIZUMAB [Suspect]
     Active Substance: VEDOLIZUMAB
     Dosage: 300 MILLIGRAM, Q4WEEKS
  5. VEDOLIZUMAB [Suspect]
     Active Substance: VEDOLIZUMAB
     Dosage: 300 MILLIGRAM, Q4WEEKS
  6. PANTOPRAZOLE SODIUM [Suspect]
     Active Substance: PANTOPRAZOLE SODIUM
     Indication: Product used for unknown indication
  7. INDAPAMIDE [Concomitant]
     Active Substance: INDAPAMIDE
  8. IRBESARTAN [Concomitant]
     Active Substance: IRBESARTAN
  9. AMLODIPINE [Concomitant]
     Active Substance: AMLODIPINE BESYLATE
  10. PULMICORT TURBUHALER [Concomitant]
     Active Substance: BUDESONIDE
  11. MESALAMINE [Concomitant]
     Active Substance: MESALAMINE
  12. VITAMIN D [Concomitant]
     Active Substance: VITAMIN D NOS
  13. VITAMIN B12 [Concomitant]
     Active Substance: CYANOCOBALAMIN
  14. METFORMIN [Concomitant]
     Active Substance: METFORMIN HYDROCHLORIDE
  15. FLOMAX [Concomitant]
     Active Substance: TAMSULOSIN HYDROCHLORIDE
  16. UMECLIDINIUM [Concomitant]
     Active Substance: UMECLIDINIUM
  17. BREO ELLIPTA [Concomitant]
     Active Substance: FLUTICASONE FUROATE\VILANTEROL TRIFENATATE
  18. CALCIUM [Concomitant]
     Active Substance: CALCIUM
  19. CANDESARTAN [Concomitant]
     Active Substance: CANDESARTAN
  20. DUTASTERIDE [Concomitant]
     Active Substance: DUTASTERIDE

REACTIONS (13)
  - Postoperative wound infection [Recovering/Resolving]
  - Pericardial haemorrhage [Unknown]
  - Pericardial effusion [Unknown]
  - Coronary artery disease [Unknown]
  - Cardiac tamponade [Recovering/Resolving]
  - Mediastinitis [Unknown]
  - Patient-device incompatibility [Recovering/Resolving]
  - Medical device site infection [Unknown]
  - Blood pressure systolic abnormal [Unknown]
  - Off label use [Unknown]
  - Dyspnoea [Unknown]
  - Blood pressure increased [Unknown]
  - Oral candidiasis [Not Recovered/Not Resolved]

NARRATIVE: CASE EVENT DATE: 20210903
